FAERS Safety Report 18168219 (Version 1)
Quarter: 2020Q3

REPORT INFORMATION
  Report Type: Report from Study
  Country: US (occurrence: US)
  Receive Date: 20200818
  Receipt Date: 20200818
  Transmission Date: 20201103
  Serious: Yes (Other)
  Sender: FDA-Public Use
  Company Number: US-TEVA-2020-US-1814508

PATIENT
  Age: 25 Year
  Sex: Female

DRUGS (2)
  1. COPAXONE [Suspect]
     Active Substance: GLATIRAMER ACETATE
     Dates: start: 20200504, end: 20200718
  2. GLATIRAMER ACETATE. [Suspect]
     Active Substance: GLATIRAMER ACETATE
     Dates: start: 20200720

REACTIONS (6)
  - Palpitations [Unknown]
  - Swelling face [Unknown]
  - Dysgeusia [Unknown]
  - Anaphylactic reaction [Unknown]
  - Throat tightness [Recovered/Resolved]
  - Erythema [Unknown]

NARRATIVE: CASE EVENT DATE: 20200723
